FAERS Safety Report 9928329 (Version 1)
Quarter: 2014Q1

REPORT INFORMATION
  Report Type: Spontaneous
  Country: US (occurrence: US)
  Receive Date: 20140227
  Receipt Date: 20140227
  Transmission Date: 20141002
  Serious: Yes (Other)
  Sender: FDA-Public Use
  Company Number: PHHY2014US019965

PATIENT
  Age: 39 Year
  Sex: Female

DRUGS (1)
  1. NAPROXEN [Suspect]
     Indication: HEADACHE

REACTIONS (10)
  - Urticaria pigmentosa [Unknown]
  - Pruritus [Unknown]
  - Flushing [Unknown]
  - Urticaria [Unknown]
  - Diarrhoea [Unknown]
  - Bone pain [Unknown]
  - Palpitations [Unknown]
  - Macule [Unknown]
  - Papule [Unknown]
  - Skin lesion [Unknown]
